FAERS Safety Report 7831049-4 (Version None)
Quarter: 2011Q4

REPORT INFORMATION
  Report Type: 
  Country: None (occurrence: None)
  Receive Date: 20111021
  Receipt Date: 20111017
  Transmission Date: 20120403
  Serious: Yes (Other)
  Sender: FDA-Public Use
  Company Number: PHHY2011AU92127

PATIENT
  Sex: Female

DRUGS (2)
  1. CLOZARIL [Suspect]
     Dosage: 150 MG,
     Route: 048
     Dates: start: 20110725, end: 20110811
  2. QUETIAPINE [Concomitant]
     Dosage: 200 MG,

REACTIONS (5)
  - RIGHT VENTRICULAR HYPERTROPHY [None]
  - TROPONIN INCREASED [None]
  - MYOCARDITIS [None]
  - ELECTROCARDIOGRAM ABNORMAL [None]
  - TACHYCARDIA [None]
